FAERS Safety Report 22293787 (Version 2)
Quarter: 2023Q2

REPORT INFORMATION
  Report Type: Report from Study
  Country: US (occurrence: None)
  Receive Date: 20230508
  Receipt Date: 20230626
  Transmission Date: 20230722
  Serious: Yes (Death, Hospitalization, Other)
  Sender: FDA-Public Use
  Company Number: US-ROCHE-3345345

PATIENT
  Age: 83 Year
  Sex: Male
  Weight: 106.7 kg

DRUGS (1)
  1. TENECTEPLASE [Suspect]
     Active Substance: TENECTEPLASE
     Indication: Ischaemic stroke
     Dosage: 3 DOSES
     Route: 013
     Dates: start: 20230427, end: 20230427

REACTIONS (6)
  - Pneumonia [Unknown]
  - Acute kidney injury [Unknown]
  - Acute left ventricular failure [Unknown]
  - Cardio-respiratory arrest [Fatal]
  - Haemorrhagic infarction [Not Recovered/Not Resolved]
  - Off label use [Unknown]

NARRATIVE: CASE EVENT DATE: 20230502
